FAERS Safety Report 6241727-9 (Version None)
Quarter: 2009Q2

REPORT INFORMATION
  Report Type: 
  Country: None (occurrence: None)
  Receive Date: 20090623
  Receipt Date: 20061128
  Transmission Date: 20091009
  Serious: Yes (Hospitalization, Other)
  Sender: FDA-Public Use
  Company Number: JP-ROCHE-472949

PATIENT
  Age: 62 Year
  Sex: Female

DRUGS (2)
  1. INTERFERON ALFA-2A [Suspect]
     Dosage: DOSE: 9 MILLION UNITS, ONCE DAILY
     Route: 030
     Dates: start: 19930110, end: 19930123
  2. INTERFERON ALFA-2A [Suspect]
     Dosage: DOSE: 6 MILLION UNITS, 3 TIMES PER WEEK
     Route: 030
     Dates: start: 19930124, end: 19930625

REACTIONS (3)
  - ALANINE AMINOTRANSFERASE INCREASED [None]
  - ATRIOVENTRICULAR BLOCK COMPLETE [None]
  - SARCOIDOSIS [None]
